FAERS Safety Report 8911200 (Version 1)
Quarter: 2012Q4

REPORT INFORMATION
  Report Type: 
  Country: US (occurrence: US)
  Receive Date: 20121116
  Receipt Date: 20121116
  Transmission Date: 20130627
  Serious: No
  Sender: FDA-Public Use
  Company Number: US-GLAXOSMITHKLINE-A0990965A

PATIENT
  Age: 64 Year
  Sex: Female

DRUGS (16)
  1. VOTRIENT [Suspect]
     Indication: PRODUCT USED FOR UNKNOWN INDICATION
     Dosage: 800MG Per day
     Route: 048
  2. FUROSEMIDE [Concomitant]
  3. ONDANSETRON [Concomitant]
  4. GABAPENTIN [Concomitant]
  5. LISINOPRIL [Concomitant]
  6. NOVOLOG [Concomitant]
  7. LEVOTHYROXIN [Concomitant]
  8. UNITHROID [Concomitant]
  9. VERAPAMIL SR [Concomitant]
  10. MORPHINE SULFATE [Concomitant]
  11. ATROVENT [Concomitant]
  12. POTASSIUM [Concomitant]
  13. GLUTAMINE [Concomitant]
  14. ASPIRIN [Concomitant]
  15. VITAMIN D3 [Concomitant]
  16. MILK THISTLE [Concomitant]

REACTIONS (1)
  - Constipation [Unknown]
